FAERS Safety Report 24742463 (Version 1)
Quarter: 2024Q4

REPORT INFORMATION
  Report Type: Spontaneous
  Country: US (occurrence: US)
  Receive Date: 20241217
  Receipt Date: 20241217
  Transmission Date: 20250114
  Serious: No
  Sender: PHARMING GROUP
  Company Number: US-PHARMING-PHAUS2024001129

PATIENT

DRUGS (1)
  1. RUCONEST [Suspect]
     Active Substance: CONESTAT ALFA
     Indication: Hereditary angioedema
     Dosage: 2925 IU, AS NEEDED
     Route: 042
     Dates: start: 202302

REACTIONS (3)
  - Dehydration [Unknown]
  - Vein collapse [Unknown]
  - Vascular access site complication [Unknown]
